FAERS Safety Report 10385576 (Version 1)
Quarter: 2014Q3

REPORT INFORMATION
  Report Type: Spontaneous
  Country: GR (occurrence: None)
  Receive Date: 20140812
  Receipt Date: 20140812
  Transmission Date: 20150326
  Serious: Yes (Hospitalization)
  Sender: FDA-Public Use
  Company Number: AUR-APL-2014-08533

PATIENT
  Age: 60 Year
  Sex: Male
  Weight: 60.6 kg

DRUGS (8)
  1. SPIRULINA [Suspect]
     Active Substance: SPIRULINA
     Indication: EXOSTOSIS
     Dosage: 2 SPIRULINA TABLETS CONTAINING 23 OMEGA-3 FATTY ACIDS
  2. AMOXICILLIN+CLAVULANIC ACID [Suspect]
     Active Substance: AMOXICILLIN\CLAVULANIC ACID
     Indication: RESPIRATORY DISORDER
  3. PREDNISONE (PREDNISONE) [Suspect]
     Active Substance: PREDNISONE
  4. FISH OIL (FISH OIL) [Suspect]
     Active Substance: FISH OIL
     Indication: EXOSTOSIS
     Dosage: 10 ML (968 EPA AND 878 MG DHA)
  5. LINSEED OIL [Suspect]
     Active Substance: LINSEED OIL
     Indication: EXOSTOSIS
     Dosage: 2 TABLESPOONS OF LINSEED 2 TABLESPOONS OF LINSEED 2 TABLESPOONS OF LINSEED 2 TABLESPOONS OF LINSEED
  6. CHLORELLA VULGARIS [Suspect]
     Active Substance: CHLORELLA VULGARIS
     Indication: EXOSTOSIS
     Dosage: 2 TABLETS CONTAINING 30 MG OF OMEGA-3 FATTY ACIDS
  7. OMEGA-3 ACIDS [Suspect]
     Active Substance: OMEGA-3 FATTY ACIDS
     Indication: EXOSTOSIS
  8. COD-LIVER OIL [Suspect]
     Active Substance: FISH OIL
     Indication: EXOSTOSIS
     Dosage: 5 ML OF COD LIVER OIL CONTAINING 3,202 MG OF OMEGA-3 FATTY ACIDS

REACTIONS (8)
  - Thalassaemia beta [None]
  - Duodenal ulcer [None]
  - Anisocytosis [None]
  - Helicobacter infection [None]
  - Hypochromic anaemia [None]
  - Gastrointestinal haemorrhage [None]
  - Hiatus hernia [None]
  - Oesophagitis [None]
